FAERS Safety Report 13610600 (Version 2)
Quarter: 2017Q2

REPORT INFORMATION
  Report Type: Report from Study
  Country: CO (occurrence: CO)
  Receive Date: 20170605
  Receipt Date: 20170607
  Transmission Date: 20170830
  Serious: Yes (Death, Other)
  Sender: FDA-Public Use
  Company Number: PHHY2017CO082162

PATIENT
  Sex: Male

DRUGS (1)
  1. MYFORTIC [Suspect]
     Active Substance: MYCOPHENOLATE SODIUM
     Indication: LIVER TRANSPLANT
     Route: 065

REACTIONS (3)
  - Product use in unapproved indication [Unknown]
  - Death [Fatal]
  - Hepatic cancer [Unknown]

NARRATIVE: CASE EVENT DATE: 20140315
